FAERS Safety Report 9976816 (Version 1)
Quarter: 2014Q1

REPORT INFORMATION
  Report Type: Report from Study
  Country: US (occurrence: US)
  Receive Date: 20140306
  Receipt Date: 20140306
  Transmission Date: 20141002
  Serious: No
  Sender: FDA-Public Use
  Company Number: US-ABBVIE-13P-163-1166180-00

PATIENT
  Age: 56 Year
  Sex: Female
  Weight: 100.79 kg

DRUGS (6)
  1. HUMIRA [Suspect]
     Indication: RHEUMATOID ARTHRITIS
     Dates: start: 20130728
  2. LITHIUM [Concomitant]
     Indication: BIPOLAR DISORDER
  3. SYNTHROID [Concomitant]
     Indication: HYPOTHYROIDISM
  4. HYDROXYCHLOROQUINE [Concomitant]
     Indication: PAIN
  5. CALCIUM [Concomitant]
     Indication: BONE DISORDER
  6. MULTIVITAMIN [Concomitant]
     Indication: VITAMIN SUPPLEMENTATION

REACTIONS (2)
  - Local swelling [Recovering/Resolving]
  - Drug dose omission [Unknown]
